FAERS Safety Report 14385253 (Version 1)
Quarter: 2018Q1

REPORT INFORMATION
  Report Type: Spontaneous
  Country: US (occurrence: US)
  Receive Date: 20180115
  Receipt Date: 20180115
  Transmission Date: 20180509
  Serious: Yes (Other)
  Sender: FDA-Public Use
  Company Number: US-SA-2016SA223060

PATIENT
  Age: 49 Year
  Sex: Female
  Weight: 73.9 kg

DRUGS (7)
  1. TAXOTERE [Suspect]
     Active Substance: DOCETAXEL
     Indication: BREAST CANCER FEMALE
     Dosage: DOSAGE: 130, 100, 90 MG
     Route: 051
     Dates: start: 20120530, end: 20120530
  2. TETRAHYDROCANNABINOL [Concomitant]
     Active Substance: DRONABINOL
     Route: 065
  3. TAXOTERE [Suspect]
     Active Substance: DOCETAXEL
     Indication: BREAST CANCER FEMALE
     Dosage: DOSAGE: 130, 100, 90 MG
     Route: 051
     Dates: start: 20120217, end: 20120217
  4. TAMOXIFEN [Concomitant]
     Active Substance: TAMOXIFEN
  5. PARAPLATIN [Concomitant]
     Active Substance: CARBOPLATIN
  6. PREDNISONE. [Concomitant]
     Active Substance: PREDNISONE
  7. IRON [Concomitant]
     Active Substance: IRON

REACTIONS (6)
  - Anxiety [Unknown]
  - Emotional distress [Unknown]
  - Alopecia [Not Recovered/Not Resolved]
  - Pain [Unknown]
  - Impaired quality of life [Unknown]
  - Psychological trauma [Unknown]
